FAERS Safety Report 8764159 (Version 1)
Quarter: 2012Q4

REPORT INFORMATION
  Report Type: 
  Country: FR (occurrence: FR)
  Receive Date: 20120831
  Receipt Date: 20120831
  Transmission Date: 20130627
  Serious: Yes (Hospitalization)
  Sender: FDA-Public Use
  Company Number: FR-SANOFI-AVENTIS-2012SA060370

PATIENT
  Age: 83 Year
  Sex: Female

DRUGS (11)
  1. AMAREL [Suspect]
     Indication: TYPE 2 DIABETES MELLITUS
     Route: 048
  2. LASILIX [Suspect]
     Indication: HYPERTENSION ARTERIAL
     Route: 048
  3. METFORMIN HYDROCHLORIDE/SITAGLIPTIN PHOSPHATE [Suspect]
     Indication: TYPE 2 DIABETES MELLITUS
     Route: 048
     Dates: start: 201201, end: 20120723
  4. COAPROVEL [Suspect]
     Indication: HYPERTENSION ARTERIAL
     Route: 048
  5. PREVISCAN [Suspect]
     Indication: ATRIAL FIBRILLATION
     Dosage: 3/4 df
     Route: 048
     Dates: start: 20120722
  6. TAHOR [Suspect]
     Indication: HYPERCHOLESTEROLEMIA
     Route: 048
  7. NEBILOX [Concomitant]
  8. LAROXYL [Concomitant]
  9. SMECTITE [Concomitant]
  10. METEOXANE [Concomitant]
  11. CELLUVISC [Concomitant]

REACTIONS (1)
  - Renal failure acute [Recovering/Resolving]
